FAERS Safety Report 9528385 (Version 2)
Quarter: 2014Q2

REPORT INFORMATION
  Report Type: Spontaneous
  Country: NO (occurrence: NO)
  Receive Date: 20130917
  Receipt Date: 20140623
  Transmission Date: 20141212
  Serious: No
  Sender: FDA-Public Use
  Company Number: NO-ASTELLAS-2013EU007815

PATIENT
  Age: 18 Year
  Sex: Female

DRUGS (2)
  1. BETMIGA [Suspect]
     Indication: HYPERTONIC BLADDER
     Route: 065
     Dates: start: 20130522, end: 20130904
  2. LOETTE [Concomitant]
     Indication: MENSTRUAL DISORDER
     Route: 065
     Dates: start: 2011

REACTIONS (1)
  - Amenorrhoea [Recovered/Resolved]
